FAERS Safety Report 5970796-6 (Version None)
Quarter: 2008Q4

REPORT INFORMATION
  Report Type: 
  Country: None (occurrence: None)
  Receive Date: 20081126
  Receipt Date: 20081114
  Transmission Date: 20090506
  Serious: No
  Sender: FDA-Public Use
  Company Number: US-ABBOTT-08P-163-0487833-00

PATIENT
  Sex: Male

DRUGS (3)
  1. SIMCOR [Suspect]
     Indication: DRUG USE FOR UNKNOWN INDICATION
     Dates: start: 20081101, end: 20081113
  2. PREGABALIN [Concomitant]
     Indication: DRUG USE FOR UNKNOWN INDICATION
  3. BUPRENORPHINE HYDROCHLORIDE [Concomitant]
     Indication: DRUG USE FOR UNKNOWN INDICATION

REACTIONS (5)
  - FEELING ABNORMAL [None]
  - PAIN [None]
  - POOR QUALITY SLEEP [None]
  - SKIN BURNING SENSATION [None]
  - SKIN DISCOLOURATION [None]
